FAERS Safety Report 10162518 (Version 2)
Quarter: 2014Q2

REPORT INFORMATION
  Report Type: Spontaneous
  Country: DE (occurrence: None)
  Receive Date: 20140507
  Receipt Date: 20140514
  Transmission Date: 20141212
  Serious: Yes (Other)
  Sender: FDA-Public Use
  Company Number: AUR-APL-2014-05235

PATIENT
  Age: 14 Year
  Sex: Female

DRUGS (2)
  1. REPAGLINIDE [Suspect]
     Indication: TYPE 2 DIABETES MELLITUS
     Dosage: (3 MG,1 D)
  2. NPH (ISOPHANE INSULIN) [Concomitant]

REACTIONS (3)
  - Hypoglycaemia [None]
  - Blood glucose increased [None]
  - Off label use [None]
